FAERS Safety Report 13613523 (Version 2)
Quarter: 2017Q2

REPORT INFORMATION
  Report Type: Report from Study
  Country: BR (occurrence: BR)
  Receive Date: 20170605
  Receipt Date: 20170630
  Transmission Date: 20170830
  Serious: Yes (Other)
  Sender: FDA-Public Use
  Company Number: PHHY2016BR057141

PATIENT
  Sex: Female
  Weight: 45 kg

DRUGS (8)
  1. GILENYA [Suspect]
     Active Substance: FINGOLIMOD HYDROCHLORIDE
     Indication: MULTIPLE SCLEROSIS
     Dosage: 0.5 MG, QD
     Route: 048
     Dates: start: 20150211
  2. VITAMIN D [Concomitant]
     Active Substance: CHOLECALCIFEROL
     Indication: PRODUCT USED FOR UNKNOWN INDICATION
     Dosage: 10 DRP, QD
     Route: 065
  3. GILENYA [Suspect]
     Active Substance: FINGOLIMOD HYDROCHLORIDE
     Dosage: 0.5 MG, 5 TIMES A WEEK
     Route: 048
     Dates: start: 20150629
  4. GILENYA [Suspect]
     Active Substance: FINGOLIMOD HYDROCHLORIDE
     Dosage: 0.5 MG, 6 TIMES A WEEK
     Route: 048
     Dates: start: 201610
  5. GILENYA [Suspect]
     Active Substance: FINGOLIMOD HYDROCHLORIDE
     Dosage: 0.5 MG, 5 TIMES A WEEK
     Route: 048
     Dates: start: 201612, end: 201705
  6. FINGOLIMOD HYDROCHLORIDE [Suspect]
     Active Substance: FINGOLIMOD HYDROCHLORIDE
     Indication: PRODUCT USED FOR UNKNOWN INDICATION
     Dosage: UNK
     Route: 065
     Dates: start: 201703
  7. GILENYA [Suspect]
     Active Substance: FINGOLIMOD HYDROCHLORIDE
     Dosage: UNK
     Route: 048
     Dates: start: 201704, end: 201705
  8. ENDROSTAN [Concomitant]
     Active Substance: ALENDRONATE SODIUM
     Indication: OSTEOPOROSIS
     Dosage: UNK, (ON SATURDAY)
     Route: 065

REACTIONS (11)
  - Fatigue [Unknown]
  - Blood test abnormal [Recovered/Resolved]
  - Nervousness [Unknown]
  - Musculoskeletal pain [Unknown]
  - Tendonitis [Unknown]
  - Asthenia [Unknown]
  - Leukopenia [Recovered/Resolved]
  - Immunodeficiency [Unknown]
  - Insomnia [Unknown]
  - Lymphocyte count decreased [Not Recovered/Not Resolved]
  - Prescribed underdose [Unknown]
